FAERS Safety Report 13394264 (Version 1)
Quarter: 2017Q2

REPORT INFORMATION
  Report Type: Report from Study
  Country: PL (occurrence: PL)
  Receive Date: 20170402
  Receipt Date: 20170402
  Transmission Date: 20170830
  Serious: Yes (Other)
  Sender: FDA-Public Use
  Company Number: PL-MYLANLABS-2017M1020091

PATIENT

DRUGS (6)
  1. KETOPROFEN. [Concomitant]
     Active Substance: KETOPROFEN
     Indication: ANAESTHESIA
     Route: 042
  2. PARACETAMOL [Concomitant]
     Active Substance: ACETAMINOPHEN
     Indication: ANAESTHESIA
     Route: 041
  3. PETHIDINE [Concomitant]
     Active Substance: MEPERIDINE
     Indication: ANAESTHESIA
     Dosage: VIA PCA (DEMAND DOSE, 10MG; 10 MIN, 4 HOURS LIMIT; 1.5MG/KG)
     Route: 042
  4. PETHIDINE [Concomitant]
     Active Substance: MEPERIDINE
     Dosage: 10 MG
     Route: 040
  5. FENTANYL. [Suspect]
     Active Substance: FENTANYL
     Indication: ANALGESIC THERAPY
     Dosage: 25 MICROG
     Route: 037
  6. BUPIVACAINE. [Concomitant]
     Active Substance: BUPIVACAINE
     Indication: ANAESTHESIA
     Dosage: 0.5%
     Route: 037

REACTIONS (2)
  - Respiratory depression [Unknown]
  - Delayed recovery from anaesthesia [Unknown]
